FAERS Safety Report 7815865-0 (Version None)
Quarter: 2011Q4

REPORT INFORMATION
  Report Type: 
  Country: None (occurrence: None)
  Receive Date: 20111014
  Receipt Date: 20111006
  Transmission Date: 20120403
  Serious: Yes (Other)
  Sender: FDA-Public Use
  Company Number: US-US-EMD SERONO, INC.-7088221

PATIENT
  Sex: Female
  Weight: 72 kg

DRUGS (6)
  1. ALEVE [Concomitant]
     Indication: PREMEDICATION
  2. REBIF [Suspect]
     Indication: MULTIPLE SCLEROSIS
     Route: 058
     Dates: start: 20080408
  3. GABAPENTIN [Concomitant]
     Indication: PAIN
  4. HYDROCODONE BITARTRATE [Concomitant]
     Indication: PAIN
  5. CYMBALTA [Concomitant]
     Indication: DEPRESSION
  6. AMBIEN [Concomitant]
     Indication: INSOMNIA

REACTIONS (3)
  - FALL [None]
  - CENTRAL NERVOUS SYSTEM LESION [None]
  - ROTATOR CUFF SYNDROME [None]
